FAERS Safety Report 13476458 (Version 1)
Quarter: 2017Q2

REPORT INFORMATION
  Report Type: Spontaneous
  Country: US (occurrence: US)
  Receive Date: 20170425
  Receipt Date: 20170425
  Transmission Date: 20170830
  Serious: Yes (Other)
  Sender: FDA-Public Use
  Company Number: US-APOPHARMA USA, INC.-2017AP010441

PATIENT
  Age: 59 Year
  Sex: Female

DRUGS (3)
  1. BUSULFAN. [Concomitant]
     Active Substance: BUSULFAN
     Indication: STEM CELL TRANSPLANT
     Dosage: UNK, UNKNOWN
     Route: 065
  2. ALKERAN [Suspect]
     Active Substance: MELPHALAN
     Indication: STEM CELL TRANSPLANT
     Dosage: 140 MG/M2, UNKNOWN
     Route: 065
  3. BORTEZOMIB [Concomitant]
     Active Substance: BORTEZOMIB
     Indication: PRODUCT USED FOR UNKNOWN INDICATION
     Dosage: UNK, UNKNOWN
     Route: 065

REACTIONS (2)
  - Brachial plexopathy [Recovered/Resolved]
  - Axonal neuropathy [Recovered/Resolved]
